FAERS Safety Report 11164746 (Version 3)
Quarter: 2015Q3

REPORT INFORMATION
  Report Type: Spontaneous
  Country: US (occurrence: US)
  Receive Date: 20150604
  Receipt Date: 20150806
  Transmission Date: 20151125
  Serious: Yes (Other)
  Sender: FDA-Public Use
  Company Number: US-TEVA-567144USA

PATIENT

DRUGS (2)
  1. MESNA. [Suspect]
     Active Substance: MESNA
     Route: 065
  2. IFEX [Suspect]
     Active Substance: IFOSFAMIDE
     Route: 065

REACTIONS (2)
  - Metastasis [Unknown]
  - Disease progression [Unknown]
